FAERS Safety Report 15699058 (Version 1)
Quarter: 2018Q4

REPORT INFORMATION
  Report Type: Report from Study
  Country: CO (occurrence: CO)
  Receive Date: 20181207
  Receipt Date: 20181207
  Transmission Date: 20190205
  Serious: Yes (Death, Hospitalization)
  Sender: FDA-Public Use
  Company Number: CO-ASTELLAS-2018US043278

PATIENT
  Age: 12 Month
  Sex: Female

DRUGS (2)
  1. TACROLIMUS. [Suspect]
     Active Substance: TACROLIMUS
     Indication: LIVER TRANSPLANT
     Dosage: 0.1 MG, ONCE DAILY
     Route: 048
     Dates: start: 20170710
  2. TACROLIMUS. [Suspect]
     Active Substance: TACROLIMUS
     Dosage: 0.4 CC, UNKNOWN FREQ.
     Route: 065
     Dates: end: 20181117

REACTIONS (3)
  - Wrong technique in product usage process [Unknown]
  - Cardio-respiratory arrest neonatal [Fatal]
  - Vomiting [Fatal]

NARRATIVE: CASE EVENT DATE: 20170710
